FAERS Safety Report 6314453-5 (Version None)
Quarter: 2009Q3

REPORT INFORMATION
  Report Type: 
  Country: None (occurrence: None)
  Receive Date: 20090817
  Receipt Date: 20090817
  Transmission Date: 20100115
  Serious: Yes (Other)
  Sender: FDA-Public Use
  Company Number: None

PATIENT
  Age: 47 Year
  Sex: Male
  Weight: 108.8633 kg

DRUGS (3)
  1. VOLTAREN [Suspect]
     Indication: ARTHROPATHY
     Dosage: 2G BID CUTANEOUS
     Route: 003
     Dates: start: 20090804, end: 20090806
  2. VOLTAREN [Suspect]
     Indication: BACK DISORDER
     Dosage: 2G BID CUTANEOUS
     Route: 003
     Dates: start: 20090804, end: 20090806
  3. MICARDIS DIE [Concomitant]

REACTIONS (7)
  - DIARRHOEA [None]
  - FATIGUE [None]
  - HYPERHIDROSIS [None]
  - HYPERTENSION [None]
  - JAUNDICE [None]
  - MIGRAINE [None]
  - SOMNOLENCE [None]
